FAERS Safety Report 23055251 (Version 1)
Quarter: 2023Q4

REPORT INFORMATION
  Report Type: Spontaneous
  Country: US (occurrence: US)
  Receive Date: 20231011
  Receipt Date: 20231011
  Transmission Date: 20240110
  Serious: No
  Sender: FDA-Public Use
  Company Number: US-SA-SAC20231009000068

PATIENT
  Age: 37 Year
  Sex: Female

DRUGS (14)
  1. DUPIXENT [Suspect]
     Active Substance: DUPILUMAB
     Indication: Asthma
     Dosage: 300 MG, QOW
     Route: 058
  2. AMMONIUM LACTATE [Concomitant]
     Active Substance: AMMONIUM LACTATE
  3. AZELASTINE [Concomitant]
     Active Substance: AZELASTINE
  4. CLOBETASOL [Concomitant]
     Active Substance: CLOBETASOL
  5. ESTRADIOL [Concomitant]
     Active Substance: ESTRADIOL
  6. FLUOXETINE [Concomitant]
     Active Substance: FLUOXETINE HYDROCHLORIDE
  7. FLUCONAZOLE [Concomitant]
     Active Substance: FLUCONAZOLE
  8. FLUOXETINE [Concomitant]
     Active Substance: FLUOXETINE HYDROCHLORIDE
  9. FLUTICASONE [Concomitant]
     Active Substance: FLUTICASONE
  10. ONDANSETRON [Concomitant]
     Active Substance: ONDANSETRON
     Dosage: UNK
  11. HUMIRA [Concomitant]
     Active Substance: ADALIMUMAB
  12. HYDROXYZINE HYDROCHLORIDE [Concomitant]
     Active Substance: HYDROXYZINE HYDROCHLORIDE
  13. OMEPRAZOLE [Concomitant]
     Active Substance: OMEPRAZOLE
  14. OMEPRAZOLE [Concomitant]
     Active Substance: OMEPRAZOLE

REACTIONS (1)
  - Illness [Unknown]
